FAERS Safety Report 10589704 (Version 1)
Quarter: 2014Q4

REPORT INFORMATION
  Report Type: Spontaneous
  Country: JP (occurrence: None)
  Receive Date: 20141114
  Receipt Date: 20141114
  Transmission Date: 20150529
  Serious: Yes (Other)
  Sender: FDA-Public Use
  Company Number: VAL_03591_2014

PATIENT
  Age: 28 Year
  Sex: Female

DRUGS (2)
  1. METOPROLOL (METOPROLOL - METOPROLOL TARTRATE) [Suspect]
     Active Substance: METOPROLOL
     Indication: RENOVASCULAR HYPERTENSION
  2. AMLODIPINE [Suspect]
     Active Substance: AMLODIPINE BESYLATE
     Indication: RENOVASCULAR HYPERTENSION

REACTIONS (8)
  - Abortion spontaneous [None]
  - Pregnancy [None]
  - Exposure during pregnancy [None]
  - Pre-eclampsia [None]
  - No therapeutic response [None]
  - Foetal growth restriction [None]
  - Hypertension [None]
  - Caesarean section [None]
